FAERS Safety Report 23452870 (Version 1)
Quarter: 2024Q1

REPORT INFORMATION
  Report Type: Spontaneous
  Country: CO (occurrence: CO)
  Receive Date: 20240129
  Receipt Date: 20240129
  Transmission Date: 20240410
  Serious: Yes (Other)
  Sender: FDA-Public Use
  Company Number: CO-PFIZER INC-PV202400009451

PATIENT
  Age: 38 Year
  Sex: Female

DRUGS (4)
  1. DEPO-MEDROL [Suspect]
     Active Substance: METHYLPREDNISOLONE ACETATE
     Indication: Neurolysis surgical
     Dosage: 20 MG 8 CC
     Dates: start: 20170407
  2. DEPO-MEDROL [Suspect]
     Active Substance: METHYLPREDNISOLONE ACETATE
     Indication: Neuromuscular blockade
  3. BUPIVACAINE [Suspect]
     Active Substance: BUPIVACAINE
     Dosage: UNK
     Dates: start: 20170407
  4. OZONE [Suspect]
     Active Substance: OZONE
     Dosage: 46 MCG X 5CC

REACTIONS (18)
  - Product administration error [Unknown]
  - Monoplegia [Unknown]
  - Sensory loss [Unknown]
  - Paraesthesia [Unknown]
  - Muscular weakness [Unknown]
  - Hypoaesthesia [Unknown]
  - Peripheral nerve injury [Unknown]
  - Dysaesthesia [Unknown]
  - Hyperaemia [Unknown]
  - Hyperhidrosis [Unknown]
  - Mononeuropathy multiplex [Unknown]
  - Monoparesis [Unknown]
  - Neuropathic muscular atrophy [Unknown]
  - Motor dysfunction [Unknown]
  - Pain in extremity [Unknown]
  - Loss of personal independence in daily activities [Unknown]
  - Depression [Unknown]
  - General physical health deterioration [Unknown]

NARRATIVE: CASE EVENT DATE: 20170101
